FAERS Safety Report 7101545-6 (Version None)
Quarter: 2010Q4

REPORT INFORMATION
  Report Type: 
  Country: None (occurrence: None)
  Receive Date: 20101115
  Receipt Date: 20101109
  Transmission Date: 20110411
  Serious: Yes (Other)
  Sender: FDA-Public Use
  Company Number: FI-PFIZER INC-2010144244

PATIENT

DRUGS (1)
  1. TOVIAZ [Suspect]
     Dosage: 4 MG DAILY

REACTIONS (1)
  - HALLUCINATION [None]
